FAERS Safety Report 8347963-X (Version None)
Quarter: 2012Q2

REPORT INFORMATION
  Report Type: 
  Country: None (occurrence: None)
  Receive Date: 20120509
  Receipt Date: 20120427
  Transmission Date: 20120825
  Serious: Yes (Other)
  Sender: FDA-Public Use
  Company Number: BR-ELI_LILLY_AND_COMPANY-BR201205001889

PATIENT
  Sex: Male

DRUGS (2)
  1. NPH INSULIN [Concomitant]
     Dosage: UNK, UNKNOWN
     Route: 065
  2. CIALIS [Suspect]
     Dosage: UNK, UNKNOWN
     Route: 065

REACTIONS (3)
  - MYALGIA [None]
  - VISUAL IMPAIRMENT [None]
  - VASCULAR GRAFT [None]
